FAERS Safety Report 24311115 (Version 1)
Quarter: 2024Q3

REPORT INFORMATION
  Report Type: Spontaneous
  Country: JP (occurrence: JP)
  Receive Date: 20240912
  Receipt Date: 20240912
  Transmission Date: 20241016
  Serious: Yes (Other)
  Sender: SPECGX
  Company Number: JP-SPECGX-T202401866

PATIENT
  Age: 61 Year
  Sex: Male

DRUGS (1)
  1. METHADONE [Suspect]
     Active Substance: METHADONE HYDROCHLORIDE
     Indication: Cancer pain
     Dosage: DAILY
     Route: 048

REACTIONS (1)
  - Diplopia [Unknown]
